FAERS Safety Report 9297388 (Version 2)
Quarter: 2013Q2

REPORT INFORMATION
  Report Type: Spontaneous
  Country: FR (occurrence: FR)
  Receive Date: 20130520
  Receipt Date: 20130520
  Transmission Date: 20140414
  Serious: Yes (Disabling)
  Sender: FDA-Public Use
  Company Number: FR-009507513-1304FRA006649

PATIENT
  Age: 79 Year
  Sex: Female
  Weight: 86 kg

DRUGS (5)
  1. ZOCOR 20MG [Suspect]
     Indication: HYPERCHOLESTEROLAEMIA
     Dosage: 20 MG, QD
     Dates: start: 199706, end: 201110
  2. KARDEGIC [Concomitant]
  3. VASTAREL [Concomitant]
  4. ART (DIACEREIN) [Concomitant]
  5. PARIET [Concomitant]

REACTIONS (4)
  - Alveolar lung disease [Recovering/Resolving]
  - Pulmonary arterial hypertension [Recovering/Resolving]
  - Interstitial lung disease [Recovering/Resolving]
  - Aspergilloma [None]
